FAERS Safety Report 5466636-4 (Version None)
Quarter: 2007Q3

REPORT INFORMATION
  Report Type: 
  Country: None (occurrence: None)
  Receive Date: 20070921
  Receipt Date: 20070921
  Transmission Date: 20080115
  Serious: Yes (Death)
  Sender: FDA-Public Use
  Company Number: None

PATIENT
  Age: 36 Year
  Sex: Female

DRUGS (1)
  1. FENTANYL TRANSDERMAL SYSTEM [Suspect]
     Dosage: FILM, EXTENDED RELEASE

REACTIONS (3)
  - ANALGESIC DRUG LEVEL ABOVE THERAPEUTIC [None]
  - CYANOSIS [None]
  - MEDICATION ERROR [None]
